FAERS Safety Report 4710966-8 (Version None)
Quarter: 2005Q2

REPORT INFORMATION
  Report Type: 
  Country: None (occurrence: None)
  Receive Date: 20050629
  Receipt Date: 20050518
  Transmission Date: 20051028
  Serious: No
  Sender: FDA-Public Use
  Company Number: 04P-163-0283075-00

PATIENT
  Age: 61 Year
  Sex: Female
  Weight: 43.9989 kg

DRUGS (8)
  1. HUMIRA [Suspect]
     Indication: RHEUMATOID ARTHRITIS
     Dosage: SEE IMAGE
     Route: 058
     Dates: start: 20040921, end: 20050201
  2. HUMIRA [Suspect]
     Indication: RHEUMATOID ARTHRITIS
     Dosage: SEE IMAGE
     Route: 058
     Dates: start: 20050201, end: 20050401
  3. PREDNISONE TAB [Concomitant]
  4. DOCUSATE SODIUM [Concomitant]
  5. FAMCICLOVIR [Concomitant]
  6. ADVIR [Concomitant]
  7. SENOKOT [Concomitant]
  8. PROTEIN DRINK [Concomitant]

REACTIONS (4)
  - DISEASE RECURRENCE [None]
  - HEADACHE [None]
  - HOT FLUSH [None]
  - URINARY TRACT INFECTION [None]
